FAERS Safety Report 5506362-6 (Version None)
Quarter: 2007Q4

REPORT INFORMATION
  Report Type: 
  Country: None (occurrence: None)
  Receive Date: 20071105
  Receipt Date: 20071024
  Transmission Date: 20080405
  Serious: Yes (Hospitalization)
  Sender: FDA-Public Use
  Company Number: JP-ROCHE-528127

PATIENT
  Age: 70 Year
  Sex: Male

DRUGS (2)
  1. PEGASYS [Suspect]
     Route: 065
     Dates: start: 20050614
  2. REBETOL [Concomitant]
     Route: 065
     Dates: start: 20050614

REACTIONS (3)
  - BASEDOW'S DISEASE [None]
  - ENDOCRINE OPHTHALMOPATHY [None]
  - TONGUE NEOPLASM MALIGNANT STAGE UNSPECIFIED [None]
